FAERS Safety Report 25585830 (Version 1)
Quarter: 2025Q3

REPORT INFORMATION
  Report Type: Spontaneous
  Country: EU (occurrence: EU)
  Receive Date: 20250721
  Receipt Date: 20250721
  Transmission Date: 20251021
  Serious: Yes (Hospitalization)
  Sender: MYLAN
  Company Number: None

PATIENT
  Age: 96 Year
  Sex: Male
  Weight: 71.9 kg

DRUGS (44)
  1. ZOLPIDEM [Suspect]
     Active Substance: ZOLPIDEM TARTRATE
     Indication: Sleep disorder
     Dosage: 7.5 MILLIGRAM, QD (1.5 PIECES ONCE DAILY)
     Dates: start: 20240620, end: 20250622
  2. ZOLPIDEM [Suspect]
     Active Substance: ZOLPIDEM TARTRATE
     Dosage: 7.5 MILLIGRAM, QD (1.5 PIECES ONCE DAILY)
     Route: 048
     Dates: start: 20240620, end: 20250622
  3. ZOLPIDEM [Suspect]
     Active Substance: ZOLPIDEM TARTRATE
     Dosage: 7.5 MILLIGRAM, QD (1.5 PIECES ONCE DAILY)
     Route: 048
     Dates: start: 20240620, end: 20250622
  4. ZOLPIDEM [Suspect]
     Active Substance: ZOLPIDEM TARTRATE
     Dosage: 7.5 MILLIGRAM, QD (1.5 PIECES ONCE DAILY)
     Dates: start: 20240620, end: 20250622
  5. HALDOL [Suspect]
     Active Substance: HALOPERIDOL
     Indication: Delirium
     Dosage: 2 MILLIGRAM, QD (2 TABLETS ONCE DAILY)
     Dates: start: 20250618
  6. HALDOL [Suspect]
     Active Substance: HALOPERIDOL
     Indication: Restlessness
     Dosage: 2 MILLIGRAM, QD (2 TABLETS ONCE DAILY)
     Route: 048
     Dates: start: 20250618
  7. HALDOL [Suspect]
     Active Substance: HALOPERIDOL
     Dosage: 2 MILLIGRAM, QD (2 TABLETS ONCE DAILY)
     Route: 048
     Dates: start: 20250618
  8. HALDOL [Suspect]
     Active Substance: HALOPERIDOL
     Dosage: 2 MILLIGRAM, QD (2 TABLETS ONCE DAILY)
     Dates: start: 20250618
  9. ACETAMINOPHEN [Concomitant]
     Active Substance: ACETAMINOPHEN
  10. ACETAMINOPHEN [Concomitant]
     Active Substance: ACETAMINOPHEN
     Route: 048
  11. ACETAMINOPHEN [Concomitant]
     Active Substance: ACETAMINOPHEN
     Route: 048
  12. ACETAMINOPHEN [Concomitant]
     Active Substance: ACETAMINOPHEN
  13. CIPROFLOXACIN [Concomitant]
     Active Substance: CIPROFLOXACIN
  14. CIPROFLOXACIN [Concomitant]
     Active Substance: CIPROFLOXACIN
     Route: 048
  15. CIPROFLOXACIN [Concomitant]
     Active Substance: CIPROFLOXACIN
     Route: 048
  16. CIPROFLOXACIN [Concomitant]
     Active Substance: CIPROFLOXACIN
  17. FUROSEMIDE [Concomitant]
     Active Substance: FUROSEMIDE
  18. FUROSEMIDE [Concomitant]
     Active Substance: FUROSEMIDE
     Route: 048
  19. FUROSEMIDE [Concomitant]
     Active Substance: FUROSEMIDE
     Route: 048
  20. FUROSEMIDE [Concomitant]
     Active Substance: FUROSEMIDE
  21. MOVICOLON [Concomitant]
     Active Substance: POLYETHYLENE GLYCOL 3350\POTASSIUM CHLORIDE\SODIUM BICARBONATE\SODIUM CHLORIDE
  22. MOVICOLON [Concomitant]
     Active Substance: POLYETHYLENE GLYCOL 3350\POTASSIUM CHLORIDE\SODIUM BICARBONATE\SODIUM CHLORIDE
     Route: 048
  23. MOVICOLON [Concomitant]
     Active Substance: POLYETHYLENE GLYCOL 3350\POTASSIUM CHLORIDE\SODIUM BICARBONATE\SODIUM CHLORIDE
     Route: 048
  24. MOVICOLON [Concomitant]
     Active Substance: POLYETHYLENE GLYCOL 3350\POTASSIUM CHLORIDE\SODIUM BICARBONATE\SODIUM CHLORIDE
  25. METFORMIN HYDROCHLORIDE [Concomitant]
     Active Substance: METFORMIN HYDROCHLORIDE
  26. METFORMIN HYDROCHLORIDE [Concomitant]
     Active Substance: METFORMIN HYDROCHLORIDE
     Route: 048
  27. METFORMIN HYDROCHLORIDE [Concomitant]
     Active Substance: METFORMIN HYDROCHLORIDE
     Route: 048
  28. METFORMIN HYDROCHLORIDE [Concomitant]
     Active Substance: METFORMIN HYDROCHLORIDE
  29. CANDESARTAN [Concomitant]
     Active Substance: CANDESARTAN
  30. CANDESARTAN [Concomitant]
     Active Substance: CANDESARTAN
     Route: 048
  31. CANDESARTAN [Concomitant]
     Active Substance: CANDESARTAN
     Route: 048
  32. CANDESARTAN [Concomitant]
     Active Substance: CANDESARTAN
  33. CALCIUM CARBONATE\CHOLECALCIFEROL [Concomitant]
     Active Substance: CALCIUM CARBONATE\CHOLECALCIFEROL
  34. CALCIUM CARBONATE\CHOLECALCIFEROL [Concomitant]
     Active Substance: CALCIUM CARBONATE\CHOLECALCIFEROL
     Route: 048
  35. CALCIUM CARBONATE\CHOLECALCIFEROL [Concomitant]
     Active Substance: CALCIUM CARBONATE\CHOLECALCIFEROL
     Route: 048
  36. CALCIUM CARBONATE\CHOLECALCIFEROL [Concomitant]
     Active Substance: CALCIUM CARBONATE\CHOLECALCIFEROL
  37. BISOPROLOL [Concomitant]
     Active Substance: BISOPROLOL
  38. BISOPROLOL [Concomitant]
     Active Substance: BISOPROLOL
     Route: 048
  39. BISOPROLOL [Concomitant]
     Active Substance: BISOPROLOL
     Route: 048
  40. BISOPROLOL [Concomitant]
     Active Substance: BISOPROLOL
  41. ACENOCOUMAROL [Concomitant]
     Active Substance: ACENOCOUMAROL
  42. ACENOCOUMAROL [Concomitant]
     Active Substance: ACENOCOUMAROL
     Route: 048
  43. ACENOCOUMAROL [Concomitant]
     Active Substance: ACENOCOUMAROL
     Route: 048
  44. ACENOCOUMAROL [Concomitant]
     Active Substance: ACENOCOUMAROL

REACTIONS (2)
  - Restlessness [Recovered/Resolved]
  - Insomnia [Recovered/Resolved]
